FAERS Safety Report 17959084 (Version 1)
Quarter: 2020Q2

REPORT INFORMATION
  Report Type: Spontaneous
  Country: US (occurrence: US)
  Receive Date: 20200630
  Receipt Date: 20200630
  Transmission Date: 20200714
  Serious: No
  Sender: FDA-Public Use
  Company Number: US-TEVA-2020-US-1792766

PATIENT
  Age: 65 Year
  Sex: Female
  Weight: 75.82 kg

DRUGS (9)
  1. AMLODIPINE [Concomitant]
     Active Substance: AMLODIPINE BESYLATE
  2. GLIMEPIRIDE. [Concomitant]
     Active Substance: GLIMEPIRIDE
  3. COPAXONE [Suspect]
     Active Substance: GLATIRAMER ACETATE
     Route: 065
     Dates: start: 20200615
  4. COPAXONE [Suspect]
     Active Substance: GLATIRAMER ACETATE
     Dosage: INJECTION
     Route: 065
     Dates: start: 20200617
  5. COPAXONE [Suspect]
     Active Substance: GLATIRAMER ACETATE
     Dosage: INJECTION
     Route: 065
     Dates: start: 20200619
  6. LEVOTHYROXINE. [Concomitant]
     Active Substance: LEVOTHYROXINE
  7. COPAXONE [Suspect]
     Active Substance: GLATIRAMER ACETATE
     Indication: MULTIPLE SCLEROSIS
     Dosage: STARTED OVER A YEAR AGO, INJECTION
     Route: 065
  8. LISINOPRIL. [Concomitant]
     Active Substance: LISINOPRIL
  9. METFORMIN [Concomitant]
     Active Substance: METFORMIN HYDROCHLORIDE

REACTIONS (6)
  - Palpitations [Unknown]
  - Asthenia [Unknown]
  - Ocular hyperaemia [Unknown]
  - Erythema [Unknown]
  - Flushing [Unknown]
  - Blood pressure increased [Unknown]

NARRATIVE: CASE EVENT DATE: 20200619
